FAERS Safety Report 10252220 (Version 6)
Quarter: 2015Q1

REPORT INFORMATION
  Report Type: Spontaneous
  Country: US (occurrence: US)
  Receive Date: 20140623
  Receipt Date: 20150108
  Transmission Date: 20150720
  Serious: Yes (Hospitalization, Other)
  Sender: FDA-Public Use
  Company Number: US-009507513-1406USA010287

PATIENT
  Sex: Male
  Weight: 98 kg

DRUGS (1)
  1. JANUVIA [Suspect]
     Active Substance: SITAGLIPTIN PHOSPHATE
     Indication: TYPE 1 DIABETES MELLITUS
     Dosage: 100 MG, QD
     Route: 048
     Dates: start: 20120215, end: 20140819

REACTIONS (16)
  - Agitation [Unknown]
  - Hypothyroidism [Unknown]
  - Knee arthroplasty [Unknown]
  - Surgery [Unknown]
  - Metabolic disorder [Unknown]
  - Product use issue [Unknown]
  - Confusional state [Unknown]
  - Anaemia [Unknown]
  - Hypertension [Unknown]
  - Dehydration [Recovered/Resolved]
  - Clostridium difficile colitis [Unknown]
  - Delirium [Unknown]
  - Dysphonia [Unknown]
  - Productive cough [Unknown]
  - Adenocarcinoma pancreas [Unknown]
  - Stent placement [Unknown]

NARRATIVE: CASE EVENT DATE: 2012
